FAERS Safety Report 4669051-6 (Version None)
Quarter: 2005Q2

REPORT INFORMATION
  Report Type: 
  Country: None (occurrence: None)
  Receive Date: 20050519
  Receipt Date: 20050506
  Transmission Date: 20051028
  Serious: Yes (Other)
  Sender: FDA-Public Use
  Company Number: 2005072556

PATIENT
  Age: 35 Year
  Sex: Female

DRUGS (5)
  1. DEPO-PROVERA [Suspect]
     Indication: ILL-DEFINED DISORDER
     Dosage: 1ST INJECTION
     Dates: start: 20050420, end: 20050420
  2. CARBAMAZAEPINE [Concomitant]
  3. FRISIUM (CLOBAZAM) [Concomitant]
  4. THYROXINE (LEVOTHYROXINE) [Concomitant]
  5. VITAMINS [Concomitant]

REACTIONS (6)
  - ALOPECIA [None]
  - CONFUSIONAL STATE [None]
  - HAEMORRHAGE [None]
  - PANIC DISORDER [None]
  - PARTIAL SEIZURES [None]
  - THINKING ABNORMAL [None]
